FAERS Safety Report 4394820-X (Version None)
Quarter: 2004Q3

REPORT INFORMATION
  Report Type: 
  Country: None (occurrence: None)
  Receive Date: 20040706
  Receipt Date: 20040619
  Transmission Date: 20050211
  Serious: Yes (Disabling)
  Sender: FDA-Public Use
  Company Number: S04-TUR-02785-01

PATIENT
  Age: 38 Year
  Sex: Male

DRUGS (2)
  1. CIPRALEX                    (ESCITALOPRAM) [Suspect]
     Indication: DEPRESSION
     Dosage: 10 MG QD PO
     Route: 048
     Dates: start: 20040201, end: 20040505
  2. SLEEPING PILLS [Concomitant]

REACTIONS (5)
  - BLINDNESS UNILATERAL [None]
  - CATARACT [None]
  - CORNEAL OPACITY [None]
  - VISION BLURRED [None]
  - VITREOUS FLOATERS [None]
